FAERS Safety Report 21007124 (Version 3)
Quarter: 2022Q4

REPORT INFORMATION
  Report Type: Report from Study
  Country: US (occurrence: US)
  Receive Date: 20220625
  Receipt Date: 20221108
  Transmission Date: 20230112
  Serious: Yes (Hospitalization, Other)
  Sender: FDA-Public Use
  Company Number: US-BRISTOL-MYERS SQUIBB COMPANY-2022-052184

PATIENT
  Age: 79 Year
  Sex: Female
  Weight: 78.01 kg

DRUGS (33)
  1. POMALYST [Suspect]
     Active Substance: POMALIDOMIDE
     Indication: Plasma cell myeloma
     Dosage: LOT NUMBER: C2514A; EXPIRATION DATE: 31-JAN-2026?EXPIRY DATE-28 FEB 2026
     Route: 048
     Dates: start: 202002
  2. POMALYST [Suspect]
     Active Substance: POMALIDOMIDE
     Route: 048
     Dates: start: 20220601
  3. POMALYST [Suspect]
     Active Substance: POMALIDOMIDE
     Route: 065
  4. REVLIMID [Concomitant]
     Active Substance: LENALIDOMIDE
  5. ACYCLOVIR [Concomitant]
     Active Substance: ACYCLOVIR
  6. ACYCLOVIR [Concomitant]
     Active Substance: ACYCLOVIR
  7. ASPIRIN [Concomitant]
     Active Substance: ASPIRIN
     Dosage: CHEWABLE
  8. ATORVASTATIN CALCIUM [Concomitant]
     Active Substance: ATORVASTATIN CALCIUM
  9. BIOTIN [Concomitant]
     Active Substance: BIOTIN
  10. LEXAPRO [Concomitant]
     Active Substance: ESCITALOPRAM OXALATE
  11. VITAMIN B12 [Concomitant]
     Active Substance: CYANOCOBALAMIN
  12. VITAMIN B12 [Concomitant]
     Active Substance: CYANOCOBALAMIN
  13. VITAMIN D3 [Concomitant]
     Active Substance: CHOLECALCIFEROL
     Dosage: CHEWABLE
  14. VITAMIN D3 [Concomitant]
     Active Substance: CHOLECALCIFEROL
     Dosage: CHEWABLE
  15. TYLENOL [Concomitant]
     Active Substance: ACETAMINOPHEN
  16. CLARITHROMYCIN [Concomitant]
     Active Substance: CLARITHROMYCIN
  17. PREVACID [Concomitant]
     Active Substance: LANSOPRAZOLE
     Dosage: 24 HR
  18. ATIVAN [Concomitant]
     Active Substance: LORAZEPAM
  19. TRAMADOL HCL [Concomitant]
     Active Substance: TRAMADOL HYDROCHLORIDE
  20. ELIQUIS [Concomitant]
     Active Substance: APIXABAN
  21. ELIQUIS [Concomitant]
     Active Substance: APIXABAN
  22. DEXAMETHASONE [Concomitant]
     Active Substance: DEXAMETHASONE
  23. DEXAMETHASONE [Concomitant]
     Active Substance: DEXAMETHASONE
  24. ONDANSETRON HCL [Concomitant]
     Active Substance: ONDANSETRON HYDROCHLORIDE
  25. DARZALEX [Concomitant]
     Active Substance: DARATUMUMAB
     Dosage: 100MG/5ML VIAL
  26. METOPROLOL TARTRATE [Concomitant]
     Active Substance: METOPROLOL TARTRATE
  27. TYLENOL EXTRA STRENGTH [Concomitant]
     Active Substance: ACETAMINOPHEN
  28. JARDIANCE [Concomitant]
     Active Substance: EMPAGLIFLOZIN
  29. LISINOPRIL [Concomitant]
     Active Substance: LISINOPRIL
  30. ZOFRAN [Concomitant]
     Active Substance: ONDANSETRON HYDROCHLORIDE
  31. IRON [Concomitant]
     Active Substance: IRON
     Dosage: 325
  32. MAGNESIUM [Concomitant]
     Active Substance: MAGNESIUM
  33. PFIZER-BIONTECH COVID-19 VACCINE [Concomitant]
     Active Substance: TOZINAMERAN

REACTIONS (4)
  - Coronary artery dissection [Unknown]
  - Myocardial infarction [Unknown]
  - Arthropathy [Recovering/Resolving]
  - Malaise [Unknown]

NARRATIVE: CASE EVENT DATE: 20220901
